FAERS Safety Report 9803727 (Version 2)
Quarter: 2014Q1

REPORT INFORMATION
  Report Type: Spontaneous
  Country: US (occurrence: US)
  Receive Date: 20140108
  Receipt Date: 20140109
  Transmission Date: 20141002
  Serious: Yes (Death)
  Sender: FDA-Public Use
  Company Number: US-009507513-1401USA001756

PATIENT
  Age: 49 Year
  Sex: Male

DRUGS (6)
  1. PRINIVIL [Suspect]
     Dosage: UNK
     Route: 048
  2. BENZTROPINE MESYLATE [Suspect]
     Dosage: UNK
     Route: 048
  3. BENZONATATE [Suspect]
     Dosage: UNK
  4. COCAINE [Suspect]
     Dosage: UNK
  5. TRAZODONE HYDROCHLORIDE [Suspect]
     Dosage: UNK
  6. AMLODIPINE [Suspect]
     Dosage: UNK

REACTIONS (1)
  - Death [Fatal]
